FAERS Safety Report 10028989 (Version 1)
Quarter: 2014Q1

REPORT INFORMATION
  Report Type: Report from Study
  Country: US (occurrence: US)
  Receive Date: 20140321
  Receipt Date: 20140321
  Transmission Date: 20141002
  Serious: Yes (Other)
  Sender: FDA-Public Use
  Company Number: US-ABBVIE-14P-163-1212800-00

PATIENT
  Sex: Female
  Weight: 88.08 kg

DRUGS (8)
  1. LUPRON DEPOT [Suspect]
     Indication: ENDOMETRIOSIS
     Route: 030
     Dates: start: 201210, end: 201301
  2. LUPRON DEPOT [Suspect]
     Route: 030
     Dates: start: 201401
  3. LOESTRIN [Concomitant]
     Indication: CONTRACEPTION
     Dates: start: 2012, end: 2014
  4. UNKNOWN ADD-BACK THERAPY [Concomitant]
     Indication: HORMONE REPLACEMENT THERAPY
     Dates: start: 201401
  5. PROZAC [Concomitant]
     Indication: ANXIETY
  6. PROZAC [Concomitant]
     Indication: DEPRESSION
  7. BUSPIRONE [Concomitant]
     Indication: DEPRESSION
  8. BUSPIRONE [Concomitant]
     Indication: ANXIETY

REACTIONS (4)
  - Endometriosis [Recovering/Resolving]
  - Abdominal pain [Not Recovered/Not Resolved]
  - Menstrual disorder [Not Recovered/Not Resolved]
  - Pain [Recovered/Resolved]
